FAERS Safety Report 5311747-7 (Version None)
Quarter: 2007Q2

REPORT INFORMATION
  Report Type: 
  Country: None (occurrence: None)
  Receive Date: 20070430
  Receipt Date: 20070418
  Transmission Date: 20071010
  Serious: Yes (Other)
  Sender: FDA-Public Use
  Company Number: US-ROCHE-494168

PATIENT
  Age: 28 Year
  Sex: Female

DRUGS (3)
  1. INVIRASE [Suspect]
     Route: 048
     Dates: start: 20070319
  2. NORVIR [Concomitant]
     Route: 048
     Dates: start: 20070319
  3. COMBIVIR [Concomitant]
     Dosage: 2 PILLS DAILY
     Route: 048
     Dates: start: 20070319

REACTIONS (1)
  - ABORTION SPONTANEOUS [None]
